FAERS Safety Report 7359603-7 (Version None)
Quarter: 2011Q1

REPORT INFORMATION
  Report Type: 
  Country: None (occurrence: None)
  Receive Date: 20110307
  Receipt Date: 20091001
  Transmission Date: 20110831
  Serious: Yes (Hospitalization)
  Sender: FDA-Public Use
  Company Number: UK-2009-00315

PATIENT
  Age: 77 Year
  Sex: Female

DRUGS (8)
  1. NIFEDIPINE (ADALAT LA) [Concomitant]
  2. ALENDRONIC ACID [Concomitant]
  3. LISINOPRIL [Concomitant]
  4. ANASTROZOLE [Concomitant]
  5. CALCIUM CARBONAE/ CHOLECALCIFEROL CONCENTRATE (POWDER FORM) /COLECALCI [Concomitant]
  6. SIMVASTATIN [Suspect]
     Indication: PRODUCT USED FOR UNKNOWN INDICATION
  7. SOTALOL HYDROCHLORIDE [Concomitant]
  8. LEVOTHYROXINE/THYROXINE (LEVOTHYROXINE SODIUM) [Concomitant]

REACTIONS (2)
  - PANCREATITIS ACUTE [None]
  - LOSS OF CONSCIOUSNESS [None]
